FAERS Safety Report 9215087 (Version 2)
Quarter: 2013Q4

REPORT INFORMATION
  Report Type: Spontaneous
  Country: US (occurrence: US)
  Receive Date: 20130405
  Receipt Date: 20131213
  Transmission Date: 20140711
  Serious: Yes (Other)
  Sender: FDA-Public Use
  Company Number: US-BAYER-2013-041455

PATIENT
  Age: 41 Year
  Sex: Female

DRUGS (13)
  1. YAZ [Suspect]
     Indication: ACNE
     Route: 048
  2. LEVOTHYROXINE [Concomitant]
     Dosage: 175 MCG/24HR, UNK
  3. SERTRALINE [Concomitant]
     Dosage: 100 MG, UNK
  4. OXYCODONE W/PARACETAMOL [Concomitant]
     Dosage: 5MG/325MG
  5. CLINDAMYCIN [Concomitant]
     Dosage: 150 MG, UNK
  6. ZOLPIDEM [Concomitant]
     Dosage: 10 MG, UNK
  7. LEVAQUIN [Concomitant]
     Dosage: 750 MG, UNK
  8. ZITHROMAX [Concomitant]
     Dosage: 250 MG, UNK
  9. VITAMIN C WITH ROSE HIPS [Concomitant]
  10. VITAMIN D [Concomitant]
  11. VERAMYST [Concomitant]
     Dosage: 27.5 MG, UNK
  12. HYDROCODONE/ACETAMINOPHEN [Concomitant]
     Dosage: 7.5/500
  13. PAPAYA ENZYME [Concomitant]

REACTIONS (4)
  - Cholecystitis [None]
  - Pain [None]
  - Injury [None]
  - Pain [None]
